FAERS Safety Report 6579889-6 (Version None)
Quarter: 2010Q1

REPORT INFORMATION
  Report Type: 
  Country: None (occurrence: None)
  Receive Date: 20100212
  Receipt Date: 20100201
  Transmission Date: 20100710
  Serious: Yes (Other)
  Sender: FDA-Public Use
  Company Number: CA-ELI_LILLY_AND_COMPANY-CA201002000581

PATIENT
  Sex: Male

DRUGS (1)
  1. CIALIS [Suspect]
     Dosage: 20 MG, AS NEEDED
     Route: 065

REACTIONS (3)
  - GASTROINTESTINAL DISORDER [None]
  - HEADACHE [None]
  - VISUAL ACUITY REDUCED TRANSIENTLY [None]
